FAERS Safety Report 14915584 (Version 1)
Quarter: 2018Q2

REPORT INFORMATION
  Report Type: Spontaneous
  Country: DE (occurrence: DE)
  Receive Date: 20180518
  Receipt Date: 20180518
  Transmission Date: 20180711
  Serious: Yes (Hospitalization)
  Sender: FDA-Public Use
  Company Number: DE-ANIPHARMA-2018-DE-000080

PATIENT
  Age: 87 Year
  Sex: Male
  Weight: 65 kg

DRUGS (8)
  1. CANDESARTAN CILEXETIL. [Suspect]
     Active Substance: CANDESARTAN CILEXETIL
     Dosage: 16 MG, 1-0-0-0, TABLET
     Route: 048
  2. ELIQUIS [Concomitant]
     Active Substance: APIXABAN
     Dosage: 5 MG, 1-0-1-0,
     Route: 048
  3. ADENURIC [Concomitant]
     Active Substance: FEBUXOSTAT
     Dosage: 80 MG, 1-0-0-0,
     Route: 048
  4. NEPRESOL (DIHYDRALAZINE MESILATE) [Suspect]
     Active Substance: DIHYDRALAZINE MESYLATE
     Dosage: 25 MG, 0.5-0.5-0.5-0, TABLET
     Route: 048
  5. SIMVABETA [Concomitant]
     Active Substance: SIMVASTATIN
     Dosage: 20 MG, 0-0-1-0,
     Route: 048
  6. XELEVIA [Concomitant]
     Active Substance: SITAGLIPTIN PHOSPHATE
     Dosage: 25 MG, 1-0-0-0,
     Route: 048
  7. TORASEMIDE [Suspect]
     Active Substance: TORSEMIDE
     Dosage: 10 MG, 1-0-0-0, TABLET
     Route: 048
  8. METOHEXAL SUCC [Suspect]
     Active Substance: METOPROLOL SUCCINATE
     Dosage: 47.5 MG, 1-0-1-0, TABLET
     Route: 048

REACTIONS (3)
  - Dizziness [Unknown]
  - Orthostatic intolerance [Unknown]
  - Drug prescribing error [Unknown]
